FAERS Safety Report 17326092 (Version 1)
Quarter: 2020Q1

REPORT INFORMATION
  Report Type: Spontaneous
  Country: US (occurrence: US)
  Receive Date: 20200127
  Receipt Date: 20200127
  Transmission Date: 20200409
  Serious: No
  Sender: FDA-Public Use
  Company Number: US-REGENERON PHARMACEUTICALS, INC.-2019-15360

PATIENT

DRUGS (2)
  1. EYLEA [Suspect]
     Active Substance: AFLIBERCEPT
     Indication: EYE DISORDER
     Dosage: UNK
     Route: 031
     Dates: start: 201710
  2. EYLEA [Suspect]
     Active Substance: AFLIBERCEPT
     Dosage: Q3 MONTHS
     Route: 031

REACTIONS (1)
  - Off label use [Unknown]
